FAERS Safety Report 11793442 (Version 1)
Quarter: 2015Q4

REPORT INFORMATION
  Report Type: Spontaneous
  Country: US (occurrence: US)
  Receive Date: 20151202
  Receipt Date: 20151202
  Transmission Date: 20160305
  Serious: No
  Sender: FDA-Public Use
  Company Number: US-IROKO PHARMACEUTICALS LLC-US-I09001-14-00081

PATIENT
  Age: 63 Year
  Sex: Female

DRUGS (8)
  1. ZORVOLEX [Suspect]
     Active Substance: DICLOFENAC
     Route: 048
     Dates: start: 20140318, end: 20140318
  2. DEXILANT [Concomitant]
     Active Substance: DEXLANSOPRAZOLE
     Indication: PRODUCT USED FOR UNKNOWN INDICATION
     Route: 065
  3. FLEXERIL [Concomitant]
     Active Substance: CYCLOBENZAPRINE HYDROCHLORIDE
     Indication: PRODUCT USED FOR UNKNOWN INDICATION
     Route: 065
  4. ZORVOLEX [Suspect]
     Active Substance: DICLOFENAC
     Indication: ARTHRALGIA
     Route: 048
     Dates: start: 20140313, end: 20140314
  5. METAMUCIL [Concomitant]
     Active Substance: PLANTAGO SEED
     Indication: PRODUCT USED FOR UNKNOWN INDICATION
     Route: 065
  6. ZORVOLEX [Suspect]
     Active Substance: DICLOFENAC
     Route: 048
     Dates: start: 20140317, end: 20140317
  7. ZORVOLEX [Suspect]
     Active Substance: DICLOFENAC
     Route: 048
     Dates: start: 20140315, end: 20140315
  8. FISH OIL [Concomitant]
     Active Substance: FISH OIL
     Indication: PRODUCT USED FOR UNKNOWN INDICATION
     Route: 065

REACTIONS (1)
  - Tachycardia [Recovered/Resolved]

NARRATIVE: CASE EVENT DATE: 20140315
